FAERS Safety Report 8077969-X (Version None)
Quarter: 2012Q1

REPORT INFORMATION
  Report Type: 
  Country: None (occurrence: None)
  Receive Date: 20120127
  Receipt Date: 20110104
  Transmission Date: 20120608
  Serious: Yes (Other)
  Sender: FDA-Public Use
  Company Number: US-ABBOTT-11P-163-0695648-00

PATIENT
  Sex: Female
  Weight: 108.96 kg

DRUGS (10)
  1. BENADRYL [Concomitant]
     Indication: PSORIASIS
  2. DOPAMINE HCL [Concomitant]
     Indication: PRURITUS
  3. BENADRYL [Concomitant]
     Indication: PRURITUS
  4. HUMIRA [Suspect]
     Indication: PSORIASIS
     Dates: start: 20070101, end: 20100501
  5. HUMIRA [Suspect]
     Dates: start: 20100701
  6. ACYCLOVIR [Concomitant]
     Indication: HERPES VIRUS INFECTION
  7. WELLBUTRIN [Concomitant]
     Indication: DEPRESSION
  8. SUPPLEMENTS [Concomitant]
     Indication: PRODUCT USED FOR UNKNOWN INDICATION
  9. HYDROCHLOROTHIAZIDE [Concomitant]
     Indication: HYPERTENSION
  10. MULTI-VITAMIN [Concomitant]
     Indication: PRODUCT USED FOR UNKNOWN INDICATION

REACTIONS (6)
  - FEMUR FRACTURE [None]
  - ARTHRALGIA [None]
  - ESCHERICHIA URINARY TRACT INFECTION [None]
  - FALL [None]
  - WEIGHT BEARING DIFFICULTY [None]
  - PSORIASIS [None]
